FAERS Safety Report 8163029-6 (Version None)
Quarter: 2012Q1

REPORT INFORMATION
  Report Type: 
  Country: None (occurrence: None)
  Receive Date: 20120224
  Receipt Date: 20120220
  Transmission Date: 20120608
  Serious: Yes (Life-Threatening, Hospitalization, Disabling, Other)
  Sender: FDA-Public Use
  Company Number: US-BAYER-2011-071073

PATIENT
  Age: 18 Year
  Sex: Female
  Weight: 97.506 kg

DRUGS (5)
  1. COUMADIN [Concomitant]
  2. NORTRIPTYLINE HCL [Concomitant]
     Indication: DEPRESSION
     Dosage: 1 TABLET DAILY
     Dates: start: 20071018
  3. HEPARIN [Concomitant]
  4. VALTREX [Concomitant]
     Indication: HERPES ZOSTER
     Dosage: 1 TABLETS FOR 7 DAYS
     Dates: start: 20071018
  5. YAZ [Suspect]
     Indication: CONTRACEPTION
     Dosage: UNK
     Dates: start: 20070718, end: 20071029

REACTIONS (10)
  - ANXIETY [None]
  - THROMBOSIS [None]
  - DEPRESSION [None]
  - FEAR OF DISEASE [None]
  - INJURY [None]
  - SINUS TACHYCARDIA [None]
  - EMOTIONAL DISTRESS [None]
  - DEEP VEIN THROMBOSIS [None]
  - PAIN [None]
  - ANHEDONIA [None]
